FAERS Safety Report 9914936 (Version 1)
Quarter: 2014Q1

REPORT INFORMATION
  Report Type: Spontaneous
  Country: ES (occurrence: ES)
  Receive Date: 20140220
  Receipt Date: 20140220
  Transmission Date: 20141002
  Serious: Yes (Hospitalization, Other)
  Sender: FDA-Public Use
  Company Number: ES-CELGENEUS-144-21660-14020763

PATIENT
  Age: 61 Year
  Sex: Male

DRUGS (6)
  1. ABRAXANE [Suspect]
     Indication: PANCREATIC CARCINOMA
     Dosage: 125 MILLIGRAM/SQ. METER
     Route: 041
     Dates: start: 20110611, end: 201211
  2. CAPECITABINE [Suspect]
     Indication: PANCREATIC CARCINOMA
     Route: 065
     Dates: start: 201211
  3. GEMCITABINE [Concomitant]
     Indication: PANCREATIC CARCINOMA
     Dosage: 1000 MILLIGRAM/SQ. METER
     Route: 065
     Dates: start: 20110611, end: 201211
  4. GEMCITABINE [Concomitant]
     Dosage: 1250 MILLIGRAM/SQ. METER
     Route: 065
     Dates: start: 20121218
  5. ENALAPRIL [Concomitant]
     Indication: HYPERTENSION
     Route: 065
  6. ANALGESICS [Concomitant]
     Indication: ABDOMINAL PAIN
     Route: 065

REACTIONS (9)
  - Neutropenia [Unknown]
  - Deep vein thrombosis [Unknown]
  - Abdominal pain [Unknown]
  - Vomiting [Unknown]
  - Neuropathy peripheral [Unknown]
  - Nausea [Unknown]
  - Alopecia [Unknown]
  - Asthenia [Unknown]
  - Pancreatic carcinoma metastatic [Unknown]
